FAERS Safety Report 19874921 (Version 3)
Quarter: 2021Q4

REPORT INFORMATION
  Report Type: Spontaneous
  Country: US (occurrence: US)
  Receive Date: 20210923
  Receipt Date: 20211029
  Transmission Date: 20220303
  Serious: No
  Sender: FDA-Public Use
  Company Number: US-TRIS PHARMA, INC.-21US009880

PATIENT

DRUGS (6)
  1. QUILLICHEW ER [Suspect]
     Active Substance: METHYLPHENIDATE HYDROCHLORIDE
     Indication: Attention deficit hyperactivity disorder
     Dosage: 50 MILLIGRAM, QD
     Route: 048
  2. QUILLICHEW ER [Suspect]
     Active Substance: METHYLPHENIDATE HYDROCHLORIDE
     Dosage: 50 MILLIGRAM, QD
     Route: 048
  3. QUILLICHEW ER [Suspect]
     Active Substance: METHYLPHENIDATE HYDROCHLORIDE
     Dosage: 40 MILLIGRAM, QD
     Route: 048
  4. QUILLICHEW ER [Suspect]
     Active Substance: METHYLPHENIDATE HYDROCHLORIDE
     Dosage: 30 MILLIGRAM, QD
     Route: 048
  5. QUILLICHEW ER [Suspect]
     Active Substance: METHYLPHENIDATE HYDROCHLORIDE
     Dosage: 20 MILLIGRAM, QD
     Route: 048
     Dates: start: 2020
  6. UNSPECIFIED INGREDIENT [Concomitant]
     Active Substance: UNSPECIFIED INGREDIENT
     Indication: Product used for unknown indication

REACTIONS (1)
  - Therapeutic product effect incomplete [Unknown]
